FAERS Safety Report 20369053 (Version 1)
Quarter: 2022Q1

REPORT INFORMATION
  Report Type: Spontaneous
  Country: US (occurrence: None)
  Receive Date: 20220122
  Receipt Date: 20220122
  Transmission Date: 20220424
  Serious: Yes (Other)
  Sender: FDA-Public Use
  Company Number: None

PATIENT
  Age: 48 Year
  Sex: Female
  Weight: 90 kg

DRUGS (1)
  1. REGEN-COV [Suspect]
     Active Substance: CASIRIVIMAB\IMDEVIMAB
     Indication: COVID-19 treatment
     Route: 042

REACTIONS (4)
  - Feeling abnormal [None]
  - Blood pressure increased [None]
  - Heart rate increased [None]
  - Hypoaesthesia [None]

NARRATIVE: CASE EVENT DATE: 20220119
